FAERS Safety Report 8806693 (Version 2)
Quarter: 2012Q4

REPORT INFORMATION
  Report Type: Report from Study
  Country: TW (occurrence: TW)
  Receive Date: 20120925
  Receipt Date: 20121124
  Transmission Date: 20130627
  Serious: Yes (Death, Hospitalization)
  Sender: FDA-Public Use
  Company Number: PHHY2012TW081028

PATIENT
  Sex: Female
  Weight: 67.2 kg

DRUGS (41)
  1. ZOLEDRONATE [Suspect]
     Dosage: 4 mg, UNK
     Route: 042
     Dates: start: 20101119, end: 20120312
  2. BRICANYL [Concomitant]
     Indication: PNEUMONIA
     Dosage: 5 mg, UNK
     Dates: start: 20120424, end: 20120425
  3. BRICANYL [Concomitant]
     Dosage: 15 mg, UNK
     Dates: start: 20120501, end: 20120502
  4. ATROVENT [Concomitant]
     Indication: PNEUMONIA
     Dosage: 500 mg, UNK
     Dates: start: 20120424, end: 20120425
  5. ZITHROMAX [Concomitant]
     Indication: PNEUMONIA
     Dosage: 500 mg, UNK
     Route: 048
     Dates: start: 20120424, end: 20120425
  6. ZITHROMAX [Concomitant]
     Dosage: 500 mg, UNK
     Route: 048
     Dates: start: 20120426, end: 20120426
  7. EXFORGE [Concomitant]
     Indication: PNEUMONIA
     Dosage: 1 DF, UNK
     Route: 048
     Dates: start: 20120425, end: 20120430
  8. SULFAMETHOXAZOLE [Concomitant]
     Indication: PNEUMONIA
     Dosage: 960 mg, UNK
     Route: 042
     Dates: start: 20120425, end: 20120501
  9. SULFAMETHOXAZOLE [Concomitant]
     Dosage: 240 mg, UNK
     Route: 042
     Dates: start: 20120501, end: 20120501
  10. COMBIVENT [Concomitant]
     Indication: PNEUMONIA
     Dosage: 10 ml, UNK
     Dates: start: 20120425, end: 20120501
  11. LORAZEPAM [Concomitant]
     Indication: INSOMNIA
     Dosage: 2 mg, UNK
     Dates: start: 20120425, end: 20120426
  12. LORAZEPAM [Concomitant]
     Dosage: 2 mg, at bed time
     Route: 048
     Dates: start: 20120426, end: 20120426
  13. NEXIUM [Concomitant]
     Indication: PROPHYLAXIS
     Dosage: 40 mg, UNK
     Route: 048
     Dates: start: 20120426
  14. CRAVIT [Concomitant]
     Indication: PNEUMONIA
     Dosage: 750 mg, UNK
     Route: 042
     Dates: start: 20120426, end: 20120430
  15. CRAVIT [Concomitant]
     Dosage: 750 mg, QD
     Route: 042
     Dates: start: 20120430, end: 20120502
  16. BETHANECHOL [Concomitant]
     Indication: PNEUMONIA
     Dosage: 75 mg, UNK
     Dates: start: 20120426, end: 20120505
  17. RINDERON [Concomitant]
     Indication: PROPHYLAXIS
     Dosage: 48 mg, UNK
     Route: 042
     Dates: start: 20120427, end: 20120502
  18. SENNAPUR [Concomitant]
     Indication: INSOMNIA
     Dosage: 25 mg, UNK
     Route: 048
     Dates: start: 20120428
  19. KALIMATE [Concomitant]
     Indication: HYPERCALCAEMIA
     Dosage: 105 g, UNK
     Route: 048
     Dates: start: 20120430
  20. KALIMATE [Concomitant]
     Dosage: 75 g, UNK
     Route: 048
     Dates: start: 20120430, end: 20120501
  21. KALIMATE [Concomitant]
     Dosage: 45 mg, UNK
     Route: 048
     Dates: start: 20120501, end: 20120501
  22. KALIMATE [Concomitant]
     Dosage: 60 mg, UNK
     Route: 048
     Dates: start: 20120501, end: 20120502
  23. KALIMATE [Concomitant]
     Dosage: 240 mg, UNK
     Route: 048
     Dates: start: 20120501, end: 20120502
  24. KALIMATE [Concomitant]
     Dosage: 40 mg, UNK
     Route: 048
     Dates: start: 20120503, end: 20120504
  25. UNASYN [Concomitant]
     Indication: PNEUMONIA
     Dosage: 4000 mg, UNK
     Dates: start: 20120425, end: 20120426
  26. KETAMINE [Concomitant]
     Indication: PNEUMONIA
     Dosage: 10 mg, UNK
     Route: 058
     Dates: start: 20120426, end: 20120427
  27. PULMICORT [Concomitant]
     Indication: PNEUMONIA
     Dosage: 2 mg, UNK
     Dates: start: 20120429, end: 20120430
  28. PRIMPERAN [Concomitant]
     Indication: PROPHYLAXIS
     Dosage: 20 mg, UNK
     Route: 042
     Dates: start: 20120501
  29. MYCOSTATIN [Concomitant]
     Indication: MUCOSAL INFLAMMATION
     Dosage: UNK UKN, UNK
     Route: 048
     Dates: start: 20120430
  30. NORVASC [Concomitant]
     Indication: HYPERTENSION
     Dosage: 5 mg, UNK
     Route: 048
     Dates: start: 20120501
  31. HUMULIN N [Concomitant]
     Indication: HYPERGLYCAEMIA
     Dosage: 8 U, UNK
     Route: 058
     Dates: start: 20120502
  32. SEROQUEL [Concomitant]
     Indication: INSOMNIA
     Dosage: 12.5 mg, UNK
     Dates: start: 20120502
  33. MEDROL [Concomitant]
     Indication: DYSPNOEA
     Dosage: 60 mg, UNK
     Route: 042
  34. SODIUM BICARBONATE [Concomitant]
     Indication: ACIDOSIS
     Dosage: 900 mg, UNK
     Route: 048
     Dates: start: 20120502
  35. ZOVIRAX [Concomitant]
     Indication: VAGINAL INFECTION
     Dosage: 1 DF, UNK
     Dates: start: 20120502
  36. ALPRAZOLAM [Concomitant]
     Dosage: 1 mg, UNK
     Route: 048
     Dates: start: 20120503
  37. MORPHINE [Concomitant]
     Indication: DYSPNOEA
     Dosage: 8 mg, UNK
     Route: 042
     Dates: start: 20120504, end: 20120505
  38. MORPHINE [Concomitant]
     Dosage: 16 mg, UNK
     Route: 042
     Dates: start: 20120505, end: 20120506
  39. MORPHINE [Concomitant]
     Dosage: 20 mg, UNK
     Route: 042
     Dates: start: 20120506
  40. PRIMAQUINE [Concomitant]
     Indication: PNEUMONIA
     Dosage: 1 DF, UNK
     Route: 048
     Dates: start: 20120504
  41. DOPAMINE [Concomitant]
     Indication: HYPOTENSION
     Dosage: 400 mg, UNK

REACTIONS (8)
  - Pneumonia [Fatal]
  - Dyspnoea [Fatal]
  - Cough [Fatal]
  - Hypoxia [Fatal]
  - Respiratory distress [Fatal]
  - Pulmonary fibrosis [Fatal]
  - Pleural effusion [Fatal]
  - Tachypnoea [Fatal]
